FAERS Safety Report 21753678 (Version 1)
Quarter: 2022Q4

REPORT INFORMATION
  Report Type: Spontaneous
  Country: US (occurrence: US)
  Receive Date: 20221220
  Receipt Date: 20221220
  Transmission Date: 20230113
  Serious: No
  Sender: FDA-Public Use
  Company Number: US-BAYER-2022A162659

PATIENT
  Sex: Male

DRUGS (1)
  1. LOTRIMIN ULTRA [Suspect]
     Active Substance: BUTENAFINE HYDROCHLORIDE
     Indication: Nail disorder
     Route: 061

REACTIONS (1)
  - Drug effective for unapproved indication [Unknown]
